FAERS Safety Report 9995194 (Version 1)
Quarter: 2014Q1

REPORT INFORMATION
  Report Type: Spontaneous
  Country: US (occurrence: None)
  Receive Date: 20140307
  Receipt Date: 20140307
  Transmission Date: 20141002
  Serious: Yes (Other)
  Sender: FDA-Public Use
  Company Number: None

PATIENT
  Age: 60 Year
  Sex: Female
  Weight: 70.31 kg

DRUGS (10)
  1. LEVOFLOXACIN [Suspect]
     Indication: SINUSITIS
     Dosage: 1  DAILY?
     Dates: start: 20131105, end: 20131113
  2. L-SYNTHROID [Concomitant]
  3. BUPROP [Concomitant]
  4. CELBREX [Concomitant]
  5. TRAMADOL HCL [Concomitant]
  6. GUAFENESIN [Concomitant]
  7. ALPRAZOLAM [Concomitant]
  8. ZOLPIDEM (AMBIEN) [Concomitant]
  9. LIDODERM [Concomitant]
  10. RESTASIS [Concomitant]

REACTIONS (3)
  - Pain [None]
  - Neck pain [None]
  - Musculoskeletal pain [None]
